FAERS Safety Report 5065526-9 (Version None)
Quarter: 2006Q3

REPORT INFORMATION
  Report Type: 
  Country: None (occurrence: None)
  Receive Date: 20060731
  Receipt Date: 20060726
  Transmission Date: 20061208
  Serious: Yes (Hospitalization, Disabling, Other)
  Sender: FDA-Public Use
  Company Number: US-GLAXOSMITHKLINE-A0613705A

PATIENT
  Age: 80 Year
  Sex: Male

DRUGS (12)
  1. BUPROPION HCL [Suspect]
     Indication: DEPRESSION
     Dosage: 200MG TWICE PER DAY
     Route: 048
     Dates: start: 20060524, end: 20060720
  2. WELLBUTRIN XL [Suspect]
     Indication: DEPRESSION
     Dosage: 150MG TWICE PER DAY
     Route: 048
     Dates: start: 20060601, end: 20060720
  3. ACTOS [Concomitant]
  4. INDERAL LA [Concomitant]
  5. FLOMAX [Concomitant]
  6. ACCUPRIL [Concomitant]
  7. GLIPIZIDE [Concomitant]
  8. CALCIUM GLUCONATE [Concomitant]
  9. HYDROCHLOROTHIAZIDE [Concomitant]
  10. ZOCOR [Concomitant]
  11. OCUVITE [Concomitant]
  12. GLUCOPHAGE [Concomitant]

REACTIONS (5)
  - DEREALISATION [None]
  - DRUG ADMINISTRATION ERROR [None]
  - HALLUCINATION, VISUAL [None]
  - HYPOXIA [None]
  - MEDICATION ERROR [None]
